FAERS Safety Report 9426896 (Version 1)
Quarter: 2013Q3

REPORT INFORMATION
  Report Type: Spontaneous
  Country: US (occurrence: US)
  Receive Date: 20130730
  Receipt Date: 20130730
  Transmission Date: 20140515
  Serious: No
  Sender: FDA-Public Use
  Company Number: US-009507513-1307USA001571

PATIENT
  Age: 32 Year
  Sex: Female

DRUGS (9)
  1. LIQUAEMIN SODIUM [Suspect]
     Indication: PROPHYLAXIS
     Route: 042
  2. VITAMINS (UNSPECIFIED) [Concomitant]
  3. ASPIRIN [Concomitant]
     Indication: ACUTE CORONARY SYNDROME
     Dosage: 325 MG, UNK
  4. ASPIRIN [Concomitant]
     Dosage: 162 MG DAILY
  5. CLOPIDOGREL [Concomitant]
     Indication: THROMBOSIS IN DEVICE
     Dosage: 75 MG DAILY
  6. CLOPIDOGREL [Concomitant]
     Dosage: 300 MG, BOLUS
  7. ABCIXIMAB [Concomitant]
     Indication: THROMBOSIS IN DEVICE
  8. DOPAMINE HYDROCHLORIDE [Concomitant]
     Indication: BLOOD PRESSURE MANAGEMENT
  9. METOPROLOL [Concomitant]
     Dosage: 25 MG, BID
     Route: 048

REACTIONS (1)
  - Exposure during pregnancy [Unknown]
